FAERS Safety Report 5343903-6 (Version None)
Quarter: 2007Q2

REPORT INFORMATION
  Report Type: 
  Country: None (occurrence: None)
  Receive Date: 20070416
  Receipt Date: 20070115
  Transmission Date: 20071010
  Serious: No
  Sender: FDA-Public Use
  Company Number: 2007SP000175

PATIENT
  Age: 51 Year
  Sex: Female
  Weight: 130.6359 kg

DRUGS (20)
  1. LUNESTA [Suspect]
     Indication: INSOMNIA
     Dosage: 2 MG;PRN;ORAL
     Route: 048
     Dates: start: 20060111
  2. VITAMIN CAP [Concomitant]
  3. CALCIUM CHLORIDE [Concomitant]
  4. AVANDIA [Concomitant]
  5. VERELAN PM [Concomitant]
  6. VYTORIN [Concomitant]
  7. LEXAPRO [Concomitant]
  8. SLOW-MAG [Concomitant]
  9. PREVACID [Concomitant]
  10. POTASSIUM CHLORIDE [Concomitant]
  11. ASPIRIN [Concomitant]
  12. LASIX [Concomitant]
  13. MONOPRIL [Concomitant]
  14. XALATAN [Concomitant]
  15. VITAMIN B-12 [Concomitant]
  16. REQUIP [Concomitant]
  17. FERROUS SULFATE [Concomitant]
  18. VICODIN [Concomitant]
  19. CHANTIX [Concomitant]
  20. HUMALOG [Concomitant]

REACTIONS (1)
  - DYSGEUSIA [None]
